FAERS Safety Report 8117613-6 (Version None)
Quarter: 2012Q1

REPORT INFORMATION
  Report Type: 
  Country: None (occurrence: None)
  Receive Date: 20120207
  Receipt Date: 20120130
  Transmission Date: 20120608
  Serious: No
  Sender: FDA-Public Use
  Company Number: US-BIOGENIDEC-2012BI003675

PATIENT
  Sex: Female

DRUGS (1)
  1. AVONEX [Suspect]
     Indication: MULTIPLE SCLEROSIS
     Route: 030
     Dates: start: 20110930

REACTIONS (8)
  - DRY SKIN [None]
  - ALOPECIA [None]
  - MULTIPLE SCLEROSIS RELAPSE [None]
  - INFLUENZA LIKE ILLNESS [None]
  - NASOPHARYNGITIS [None]
  - WHITE BLOOD CELL COUNT DECREASED [None]
  - PAIN [None]
  - MUSCLE SPASMS [None]
